FAERS Safety Report 6244677-7 (Version None)
Quarter: 2009Q2

REPORT INFORMATION
  Report Type: 
  Country: None (occurrence: None)
  Receive Date: 20090623
  Receipt Date: 20090610
  Transmission Date: 20091009
  Serious: Yes (Hospitalization)
  Sender: FDA-Public Use
  Company Number: 1362009

PATIENT
  Sex: Male

DRUGS (2)
  1. LEVOFLOXACIN [Suspect]
     Route: 047
  2. PREDNISOLONE [Suspect]
     Route: 047

REACTIONS (1)
  - TENDON RUPTURE [None]
